FAERS Safety Report 6843927-3 (Version None)
Quarter: 2010Q3

REPORT INFORMATION
  Report Type: 
  Country: None (occurrence: None)
  Receive Date: 20100715
  Receipt Date: 20100706
  Transmission Date: 20110219
  Serious: Yes (Hospitalization)
  Sender: FDA-Public Use
  Company Number: IT-ABBOTT-10P-083-0652693-00

PATIENT
  Sex: Female

DRUGS (3)
  1. DEPAKENE [Suspect]
     Indication: BIPOLAR I DISORDER
     Route: 048
     Dates: start: 20091101, end: 20100401
  2. SERTRALINE HCL [Interacting]
     Indication: PRODUCT USED FOR UNKNOWN INDICATION
  3. PERPHENAZINE AND AMITRIPTYLINE HCL [Concomitant]
     Indication: PRODUCT USED FOR UNKNOWN INDICATION

REACTIONS (2)
  - DRUG INTERACTION [None]
  - PLEUROPERICARDITIS [None]
